FAERS Safety Report 5916688-X (Version None)
Quarter: 2008Q4

REPORT INFORMATION
  Report Type: 
  Country: None (occurrence: None)
  Receive Date: 20081009
  Receipt Date: 20080929
  Transmission Date: 20090506
  Serious: Yes (Other)
  Sender: FDA-Public Use
  Company Number: FEI2008-1802

PATIENT
  Age: 36 Year
  Sex: Female
  Weight: 69.8539 kg

DRUGS (2)
  1. PARAGARD T 380A [Suspect]
     Indication: CONTRACEPTION
     Dosage: INTRA-UTERINE
     Route: 015
     Dates: start: 20080601, end: 20080901
  2. MULTIVITAMIN [Concomitant]

REACTIONS (8)
  - ABDOMINAL DISCOMFORT [None]
  - ABDOMINAL PAIN [None]
  - DYSPAREUNIA [None]
  - HAEMATOCHEZIA [None]
  - HYPERSENSITIVITY [None]
  - LOSS OF CONSCIOUSNESS [None]
  - MOOD SWINGS [None]
  - POLYMENORRHOEA [None]
